FAERS Safety Report 18981812 (Version 3)
Quarter: 2021Q3

REPORT INFORMATION
  Report Type: Spontaneous
  Country: US (occurrence: US)
  Receive Date: 20210308
  Receipt Date: 20210929
  Transmission Date: 20211014
  Serious: Yes (Other)
  Sender: FDA-Public Use
  Company Number: US-PFIZER INC-2021231124

PATIENT
  Age: 75 Year
  Sex: Female
  Weight: 46.27 kg

DRUGS (3)
  1. IBRANCE [Suspect]
     Active Substance: PALBOCICLIB
     Dosage: 75 MG, 1X/DAY FOR 21 DAYS AND OFF 7 DAYS
     Dates: start: 202104, end: 20210708
  2. ANASTROZOLE. [Concomitant]
     Active Substance: ANASTROZOLE
     Dosage: UNK
     Dates: start: 202102
  3. IBRANCE [Suspect]
     Active Substance: PALBOCICLIB
     Indication: BREAST CANCER FEMALE
     Dosage: UNK
     Route: 048

REACTIONS (16)
  - Blindness [Unknown]
  - Neuralgia [Unknown]
  - Blood pressure decreased [Recovered/Resolved]
  - Red blood cell count decreased [Unknown]
  - Lacrimation increased [Unknown]
  - Fatigue [Unknown]
  - Nausea [Unknown]
  - Condition aggravated [Unknown]
  - Neuropathy peripheral [Unknown]
  - Skin atrophy [Unknown]
  - Feeding disorder [Unknown]
  - White blood cell count decreased [Unknown]
  - Neoplasm progression [Unknown]
  - Weight decreased [Unknown]
  - Retinitis pigmentosa [Unknown]
  - Intentional product misuse [Unknown]
